FAERS Safety Report 8481680 (Version 3)
Quarter: 2013Q1

REPORT INFORMATION
  Report Type: Spontaneous
  Country: JP (occurrence: JP)
  Receive Date: 20120329
  Receipt Date: 20130313
  Transmission Date: 20140127
  Serious: Yes (Hospitalization, Other)
  Sender: FDA-Public Use
  Company Number: JP-SANOFI-AVENTIS-2012SA021168

PATIENT
  Age: 63 Year
  Sex: Female

DRUGS (1)
  1. LASIX [Suspect]
     Indication: PRODUCT USED FOR UNKNOWN INDICATION
     Dosage: STRENGTH: 20 MG
     Route: 065
     Dates: start: 201006, end: 201007

REACTIONS (4)
  - Torsade de pointes [Unknown]
  - Ventricular fibrillation [Unknown]
  - Hypoxic-ischaemic encephalopathy [Unknown]
  - Mental impairment [Unknown]
